FAERS Safety Report 11879576 (Version 2)
Quarter: 2016Q1

REPORT INFORMATION
  Report Type: Spontaneous
  Country: US (occurrence: US)
  Receive Date: 20151230
  Receipt Date: 20160126
  Transmission Date: 20160526
  Serious: Yes (Other)
  Sender: FDA-Public Use
  Company Number: US-PFIZER INC-2015458173

PATIENT
  Age: 62 Year
  Sex: Female
  Weight: 82 kg

DRUGS (4)
  1. EPLERENONE. [Suspect]
     Active Substance: EPLERENONE
     Indication: HYPERTENSION
     Dosage: 25 MG, 1X/DAY
     Route: 048
     Dates: start: 20151210, end: 20151212
  2. POTASSIUMCIER [Concomitant]
     Dosage: 20 MEQ 2X/DAY, TWO 10 MG
  3. TELMISARTAN. [Concomitant]
     Active Substance: TELMISARTAN
     Indication: HYPERTENSION
     Dosage: 80 MG, 1X/DAY
     Route: 048
     Dates: start: 20140908
  4. VITAMIN D [Concomitant]
     Active Substance: CHOLECALCIFEROL
     Dosage: 1000 IU, 1X/DAY

REACTIONS (4)
  - Blood pressure increased [Recovered/Resolved]
  - Nervousness [Not Recovered/Not Resolved]
  - Heart rate increased [Recovered/Resolved]
  - Palpitations [Not Recovered/Not Resolved]

NARRATIVE: CASE EVENT DATE: 201512
